FAERS Safety Report 6551372-3 (Version None)
Quarter: 2010Q1

REPORT INFORMATION
  Report Type: 
  Country: None (occurrence: None)
  Receive Date: 20100126
  Receipt Date: 20100119
  Transmission Date: 20100710
  Serious: Yes (Hospitalization)
  Sender: FDA-Public Use
  Company Number: TW-ROCHE-680510

PATIENT

DRUGS (2)
  1. XELODA [Suspect]
     Route: 065
  2. CAMPTOSAR [Suspect]
     Route: 065
     Dates: end: 20100101

REACTIONS (1)
  - RHABDOMYOLYSIS [None]
